FAERS Safety Report 23439506 (Version 1)
Quarter: 2024Q1

REPORT INFORMATION
  Report Type: Spontaneous
  Country: US (occurrence: US)
  Receive Date: 20240124
  Receipt Date: 20240124
  Transmission Date: 20240409
  Serious: No
  Sender: FDA-Public Use
  Company Number: US-BRISTOL-MYERS SQUIBB COMPANY-2024-012682

PATIENT
  Age: 69 Year
  Sex: Male

DRUGS (8)
  1. REVLIMID [Suspect]
     Active Substance: LENALIDOMIDE
     Indication: Plasma cell myeloma
     Dosage: DOSE: FROM 10MG TO 5MG
  2. REVLIMID [Suspect]
     Active Substance: LENALIDOMIDE
  3. FERROUS SULFATE [Concomitant]
     Active Substance: FERROUS SULFATE
  4. NOVOLOG [Concomitant]
     Active Substance: INSULIN ASPART
  5. TRULICITY [Concomitant]
     Active Substance: DULAGLUTIDE
  6. GABAPENTIN [Concomitant]
     Active Substance: GABAPENTIN
  7. ASPIRIN [Concomitant]
     Active Substance: ASPIRIN
  8. VITAMIN D NOS [Concomitant]
     Active Substance: VITAMIN D NOS

REACTIONS (2)
  - Fatigue [Unknown]
  - Off label use [Unknown]
